FAERS Safety Report 10197505 (Version 1)
Quarter: 2014Q2

REPORT INFORMATION
  Report Type: Spontaneous
  Country: US (occurrence: US)
  Receive Date: 20140527
  Receipt Date: 20140527
  Transmission Date: 20141212
  Serious: No
  Sender: FDA-Public Use
  Company Number: US-NOVEN-14US008896

PATIENT
  Sex: Female

DRUGS (1)
  1. MINIVELLE [Suspect]
     Indication: HOT FLUSH
     Dosage: 0.0375 MG, UNK
     Route: 062
     Dates: start: 201311

REACTIONS (2)
  - Breast tenderness [Not Recovered/Not Resolved]
  - Weight increased [Not Recovered/Not Resolved]
